FAERS Safety Report 4486446-4 (Version None)
Quarter: 2004Q4

REPORT INFORMATION
  Report Type: 
  Country: None (occurrence: None)
  Receive Date: 20041022
  Receipt Date: 20040930
  Transmission Date: 20050328
  Serious: Yes (Other)
  Sender: FDA-Public Use
  Company Number: HQWYE565206OCT04

PATIENT
  Age: 52 Year
  Sex: Female
  Weight: 60.84 kg

DRUGS (4)
  1. EFFEXOR XR [Suspect]
     Indication: DEPRESSION
     Dosage: 225 MG 1 X PER 1 DAY, ORAL
     Route: 048
     Dates: start: 20040701
  2. LITHIUM CARBONATE [Concomitant]
  3. ASACOL [Concomitant]
  4. ZOCOR [Concomitant]

REACTIONS (4)
  - GINGIVAL DISORDER [None]
  - GINGIVAL ULCERATION [None]
  - SKIN GRAFT [None]
  - TONGUE DISORDER [None]
